FAERS Safety Report 4520108-X (Version None)
Quarter: 2004Q4

REPORT INFORMATION
  Report Type: 
  Country: None (occurrence: None)
  Receive Date: 20041029
  Receipt Date: 20040805
  Transmission Date: 20050328
  Serious: No
  Sender: FDA-Public Use
  Company Number: 2004-119231-NL

PATIENT
  Age: 23 Year
  Sex: Female
  Weight: 61.7 kg

DRUGS (5)
  1. NUVARING [Suspect]
     Indication: CONTRACEPTION
     Dosage: DF DAILY, VAGINAL
     Route: 067
     Dates: start: 20040615
  2. K-Y JELLY [Concomitant]
  3. DIFLUCAN [Concomitant]
  4. MONISTAT [Concomitant]
  5. METROGEL-VAGINAL [Concomitant]

REACTIONS (4)
  - COMPLICATION OF DEVICE REMOVAL [None]
  - DEVICE FAILURE [None]
  - MEDICAL DEVICE DISCOMFORT [None]
  - VAGINAL MYCOSIS [None]
